FAERS Safety Report 23099314 (Version 2)
Quarter: 2023Q4

REPORT INFORMATION
  Report Type: Report from Study
  Country: US (occurrence: US)
  Receive Date: 20231024
  Receipt Date: 20231206
  Transmission Date: 20240110
  Serious: Yes (Other)
  Sender: FDA-Public Use
  Company Number: US-HORIZON THERAPEUTICS-HZN-2023-007979

PATIENT

DRUGS (12)
  1. TEPEZZA [Suspect]
     Active Substance: TEPROTUMUMAB-TRBW
     Indication: Endocrine ophthalmopathy
     Dosage: 1ST INFUSION, 740 MG, OVER 90 MIN
     Route: 042
     Dates: start: 20230901
  2. TEPEZZA [Suspect]
     Active Substance: TEPROTUMUMAB-TRBW
     Dosage: 2ND INFUSION, 1480 MG, OVER 90 MINS
     Route: 042
     Dates: start: 20230922
  3. TEPEZZA [Suspect]
     Active Substance: TEPROTUMUMAB-TRBW
     Dosage: 3RD INFUSION, 1480 MG, OVER 60 MINS
     Route: 042
     Dates: start: 20231030
  4. TEPEZZA [Suspect]
     Active Substance: TEPROTUMUMAB-TRBW
     Dosage: 4TH INFUSION,1480 MG, OVER 60 MIS
     Route: 042
     Dates: start: 20231120
  5. DIETARY SUPPLEMENT [Concomitant]
     Active Substance: DIETARY SUPPLEMENT
  6. LISINOPRIL [Concomitant]
     Active Substance: LISINOPRIL
     Dosage: 10 MG, QD
     Route: 048
  7. METHIMAZOLE [Concomitant]
     Active Substance: METHIMAZOLE
     Dosage: 5 MG, QD
     Route: 048
  8. VITAMINS [Concomitant]
     Active Substance: VITAMINS
     Dosage: 1 TABLET, QD
     Route: 048
  9. FISH OIL [Concomitant]
     Active Substance: FISH OIL
     Dosage: 1000 MG, QD
     Route: 048
  10. OMEGA-3 ACIDS [Concomitant]
     Active Substance: OMEGA-3 FATTY ACIDS
     Dosage: 3000 MG, QD
     Route: 048
  11. SELENIUM [Concomitant]
     Active Substance: SELENIUM
     Dosage: 200 UG, QD
  12. CRANBERRY [Concomitant]
     Active Substance: CRANBERRY
     Dosage: 4200 MG, QD
     Route: 048

REACTIONS (1)
  - Blood pressure increased [Recovering/Resolving]

NARRATIVE: CASE EVENT DATE: 20230101
